FAERS Safety Report 24650338 (Version 1)
Quarter: 2024Q4

REPORT INFORMATION
  Report Type: Report from Study
  Country: CN (occurrence: CN)
  Receive Date: 20241122
  Receipt Date: 20241122
  Transmission Date: 20250115
  Serious: Yes (Death)
  Sender: ROCHE
  Company Number: CN-ROCHE-10000132187

PATIENT
  Age: 72 Year
  Sex: Male

DRUGS (1)
  1. GLOFITAMAB [Suspect]
     Active Substance: GLOFITAMAB
     Indication: Diffuse large B-cell lymphoma refractory
     Dosage: 10 MG (10 ML)/VIAL
     Route: 042
     Dates: start: 20240817

REACTIONS (2)
  - Pneumonia [Unknown]
  - Pulmonary function test decreased [Fatal]
